FAERS Safety Report 17116109 (Version 1)
Quarter: 2019Q4

REPORT INFORMATION
  Report Type: Report from Study
  Country: None (occurrence: CA)
  Receive Date: 20191205
  Receipt Date: 20191205
  Transmission Date: 20200122
  Serious: Yes (Other)
  Sender: FDA-Public Use
  Company Number: CA-ABBVIE-18S-028-2607032-00

PATIENT
  Sex: Female

DRUGS (1)
  1. LUPRON DEPOT [Suspect]
     Active Substance: LEUPROLIDE ACETATE
     Indication: UTERINE LEIOMYOMA
     Route: 030
     Dates: start: 20181122, end: 20181122

REACTIONS (7)
  - Adverse reaction [Not Recovered/Not Resolved]
  - Myalgia [Not Recovered/Not Resolved]
  - Impaired driving ability [Not Recovered/Not Resolved]
  - Impaired work ability [Not Recovered/Not Resolved]
  - Fatigue [Not Recovered/Not Resolved]
  - Haemorrhage [Unknown]
  - Adverse event [Not Recovered/Not Resolved]

NARRATIVE: CASE EVENT DATE: 2018
